FAERS Safety Report 6272157-1 (Version None)
Quarter: 2009Q3

REPORT INFORMATION
  Report Type: 
  Country: None (occurrence: None)
  Receive Date: 20090713
  Receipt Date: 20090316
  Transmission Date: 20100115
  Serious: No
  Sender: FDA-Public Use
  Company Number: 2009BM000065

PATIENT
  Age: 34 Month
  Sex: Male
  Weight: 15.9666 kg

DRUGS (3)
  1. KUVAN [Suspect]
     Indication: PHENYLKETONURIA
     Dosage: 300 MG;QD;PO; 300 MG;QD; PO
     Route: 048
     Dates: start: 20090204, end: 20090306
  2. KUVAN [Suspect]
     Indication: PHENYLKETONURIA
     Dosage: 300 MG;QD;PO; 300 MG;QD; PO
     Route: 048
     Dates: start: 20090312
  3. PEDIAFLEX (CON.) [Concomitant]

REACTIONS (4)
  - GASTROENTERITIS VIRAL [None]
  - PYREXIA [None]
  - SOMNAMBULISM [None]
  - VOMITING [None]
